FAERS Safety Report 8946902 (Version 1)
Quarter: 2012Q4

REPORT INFORMATION
  Report Type: 
  Country: US (occurrence: US)
  Receive Date: 20121205
  Receipt Date: 20121205
  Transmission Date: 20130627
  Serious: Yes (Other)
  Sender: FDA-Public Use
  Company Number: CHPA2012US024188

PATIENT
  Age: 68 Year
  Sex: Female

DRUGS (1)
  1. EXCEDRIN EXTRA STRENGTH [Suspect]
     Indication: POLYMYOSITIS
     Dosage: 2 DF, PRN
     Route: 048
     Dates: start: 1982, end: 201211

REACTIONS (11)
  - Hypertension [Not Recovered/Not Resolved]
  - Gastrointestinal disorder [Not Recovered/Not Resolved]
  - Rheumatoid arthritis [Not Recovered/Not Resolved]
  - Osteoarthritis [Not Recovered/Not Resolved]
  - Polymyositis [Not Recovered/Not Resolved]
  - Appendix disorder [Recovered/Resolved]
  - Hernia [Recovered/Resolved]
  - Hypersensitivity [Not Recovered/Not Resolved]
  - Headache [Not Recovered/Not Resolved]
  - Off label use [Unknown]
  - Therapeutic response decreased [Unknown]
